FAERS Safety Report 5886076-3 (Version None)
Quarter: 2008Q3

REPORT INFORMATION
  Report Type: 
  Country: None (occurrence: None)
  Receive Date: 20080917
  Receipt Date: 20080905
  Transmission Date: 20090109
  Serious: Yes (Death, Hospitalization)
  Sender: FDA-Public Use
  Company Number: CN-ROCHE-585188

PATIENT
  Sex: Male

DRUGS (3)
  1. MYCOPHENOLATE MOFETIL [Suspect]
     Indication: RENAL TRANSPLANT
     Route: 048
     Dates: start: 20050824, end: 20051104
  2. ERL080A [Suspect]
     Indication: RENAL TRANSPLANT
     Dosage: DRUG: BLINDED.
     Route: 048
     Dates: start: 20050824, end: 20051104
  3. NEORAL [Concomitant]

REACTIONS (5)
  - APNOEA [None]
  - CHEST X-RAY ABNORMAL [None]
  - LUNG INFECTION [None]
  - PULMONARY OEDEMA [None]
  - PYREXIA [None]
